FAERS Safety Report 6295223-3 (Version None)
Quarter: 2009Q3

REPORT INFORMATION
  Report Type: 
  Country: None (occurrence: None)
  Receive Date: 20090803
  Receipt Date: 20090730
  Transmission Date: 20100115
  Serious: Yes (Other)
  Sender: FDA-Public Use
  Company Number: US-TEVA-196863USA

PATIENT
  Sex: Female

DRUGS (2)
  1. CLARAVIS CAPSULE, ISOTRETINOIN, 10MG [Suspect]
     Route: 048
     Dates: start: 20081121, end: 20090211
  2. BIRTH CONTROL PILL [Concomitant]

REACTIONS (1)
  - PREGNANCY [None]
